FAERS Safety Report 15170765 (Version 1)
Quarter: 2018Q4

REPORT INFORMATION
  Report Type: Spontaneous
  Country: US (occurrence: US)
  Receive Date: 20180720
  Receipt Date: 20180720
  Transmission Date: 20190204
  Serious: No
  Sender: FDA-Public Use
  Company Number: US-TEVA-786456USA

PATIENT
  Sex: Male

DRUGS (1)
  1. OMEPRAZOLE, 40 MG KREMERS [Suspect]
     Active Substance: OMEPRAZOLE
     Dates: start: 2015, end: 20170401

REACTIONS (3)
  - Dyspepsia [Unknown]
  - Abdominal discomfort [Unknown]
  - Flatulence [Unknown]
